FAERS Safety Report 6627028-5 (Version None)
Quarter: 2010Q1

REPORT INFORMATION
  Report Type: 
  Country: None (occurrence: None)
  Receive Date: 20100308
  Receipt Date: 20100225
  Transmission Date: 20100710
  Serious: Yes (Hospitalization)
  Sender: FDA-Public Use
  Company Number: 2010SP012262

PATIENT
  Age: 74 Year
  Sex: Female
  Weight: 75 kg

DRUGS (12)
  1. MIRTAZAPINE [Suspect]
     Indication: LEUKOENCEPHALOPATHY
     Dosage: 15 MG;BID;PO
     Route: 048
     Dates: start: 20091028, end: 20100105
  2. LARIAM [Suspect]
     Indication: LEUKOENCEPHALOPATHY
     Dosage: 250 MG;QW;PO
     Route: 048
     Dates: start: 20091028, end: 20091231
  3. PANTOPRAZOLE SODIUM [Suspect]
     Indication: REFLUX OESOPHAGITIS
     Dosage: 40 MG;BID;PO
     Route: 048
     Dates: start: 20090601
  4. ASPIRIN [Suspect]
     Indication: CORONARY ARTERY DISEASE
     Dosage: 100 MG;QD;PO
     Route: 048
     Dates: start: 20090901
  5. TOREM      (TORASEMIDE) [Suspect]
     Indication: RENAL FAILURE CHRONIC
     Dosage: 10 MG;QD;PO
     Route: 048
     Dates: start: 20090601
  6. CLOPIDOGREL [Suspect]
     Indication: CORONARY ARTERY DISEASE
     Dosage: 75 MG;QD;PO
     Route: 048
     Dates: start: 20090901
  7. PREDNISOLON [Concomitant]
  8. DIGITOXIN INJ [Concomitant]
  9. CALCILAC KT [Concomitant]
  10. SPIRONOLACTONE [Concomitant]
  11. KARVEA [Concomitant]
  12. ACTRAPID [Concomitant]

REACTIONS (6)
  - C-REACTIVE PROTEIN INCREASED [None]
  - DRUG INTERACTION [None]
  - ENDOCARDITIS [None]
  - PANCYTOPENIA [None]
  - PYREXIA [None]
  - RHONCHI [None]
